FAERS Safety Report 18148933 (Version 3)
Quarter: 2020Q3

REPORT INFORMATION
  Report Type: Spontaneous
  Country: BR (occurrence: BR)
  Receive Date: 20200813
  Receipt Date: 20200903
  Transmission Date: 20201103
  Serious: Yes (Other)
  Sender: FDA-Public Use
  Company Number: BR-009507513-2007BRA005702

PATIENT
  Sex: Female
  Weight: 55 kg

DRUGS (12)
  1. AMITRIPTYLINE HYDROCHLORIDE. [Concomitant]
     Active Substance: AMITRIPTYLINE HYDROCHLORIDE
     Dosage: UNK
  2. HYDROCHLOROTHIAZIDE. [Suspect]
     Active Substance: HYDROCHLOROTHIAZIDE
     Dosage: 25 MG, 1 TABLET
     Route: 048
  3. PURAN [Concomitant]
     Active Substance: LEVOTHYROXINE SODIUM
     Indication: HYPOTHYROIDISM
     Dosage: UNK
  4. MODURETIC 5?50 [Suspect]
     Active Substance: AMILORIDE HYDROCHLORIDE\HYDROCHLOROTHIAZIDE
     Indication: HYPERTENSION
     Dosage: UNK
     Route: 048
  5. ATENOLOL. [Concomitant]
     Active Substance: ATENOLOL
     Indication: CARDIAC DISORDER
     Dosage: 50 (UNIT NOT INFORMED) ?FOR THE HEART^
  6. CLONAZEPAM. [Concomitant]
     Active Substance: CLONAZEPAM
     Dosage: 1 IN THE MORNING OR 2, IF SHE HAS ^TOO MUCH TROUBLE^^
  7. OMEPRAZOLE. [Concomitant]
     Active Substance: OMEPRAZOLE
     Indication: ABDOMINAL PAIN UPPER
     Dosage: UNK
  8. AMILORIDE HYDROCHLORIDE (+) HYDROCHLOROTHIAZIDE [Suspect]
     Active Substance: AMILORIDE HYDROCHLORIDE\HYDROCHLOROTHIAZIDE
     Dosage: UNK
     Route: 048
  9. LOSARTAN. [Suspect]
     Active Substance: LOSARTAN
     Dosage: 50 MG, HALF A TABLET
     Route: 048
  10. GLIFAGE [Concomitant]
     Active Substance: METFORMIN HYDROCHLORIDE
     Indication: DIABETES MELLITUS
     Dosage: 500 MG 2 AT LUNCH AND 2 AT DINNER
  11. AAS [Concomitant]
     Active Substance: ASPIRIN
     Dosage: 100 MG ^2 IN THE MORNING^
  12. ROSUVASTATIN. [Concomitant]
     Active Substance: ROSUVASTATIN
     Dosage: 1 TABLET AFTER DINNER
     Route: 048

REACTIONS (15)
  - Fall [Recovered/Resolved]
  - Blood pressure fluctuation [Recovered/Resolved]
  - Agitation [Unknown]
  - Dry mouth [Recovered/Resolved]
  - Balance disorder [Recovered/Resolved]
  - Feeling cold [Unknown]
  - Cyanosis [Recovered/Resolved]
  - Loss of consciousness [Recovered/Resolved]
  - Urinary hesitation [Recovered/Resolved]
  - Nephropathy toxic [Unknown]
  - Dizziness [Recovered/Resolved]
  - Product availability issue [Unknown]
  - Dyspnoea [Unknown]
  - Blood pressure increased [Unknown]
  - Abdominal pain [Recovered/Resolved]
